FAERS Safety Report 12254832 (Version 5)
Quarter: 2016Q2

REPORT INFORMATION
  Report Type: Report from Study
  Country: US (occurrence: US)
  Receive Date: 20160411
  Receipt Date: 20160520
  Transmission Date: 20160815
  Serious: Yes (Hospitalization)
  Sender: FDA-Public Use
  Company Number: US-BIOGEN-2013BI119718

PATIENT
  Age: 51 Year
  Sex: Female

DRUGS (2)
  1. TYSABRI [Suspect]
     Active Substance: NATALIZUMAB
     Indication: MULTIPLE SCLEROSIS
     Dosage: INFUSED FOR OVER 1 HOUR
     Route: 042
     Dates: start: 20080707, end: 20100120
  2. TYSABRI [Suspect]
     Active Substance: NATALIZUMAB
     Route: 042
     Dates: end: 201605

REACTIONS (11)
  - Dizziness [Not Recovered/Not Resolved]
  - Vertigo positional [Not Recovered/Not Resolved]
  - Abasia [Recovered/Resolved]
  - Fall [Recovered/Resolved]
  - Balance disorder [Not Recovered/Not Resolved]
  - Spinal compression fracture [Recovered/Resolved]
  - Laceration [Recovered/Resolved]
  - Muscular weakness [Not Recovered/Not Resolved]
  - Concussion [Recovered/Resolved]
  - Humerus fracture [Not Recovered/Not Resolved]
  - Gait disturbance [Not Recovered/Not Resolved]

NARRATIVE: CASE EVENT DATE: 201309
